FAERS Safety Report 8250685-7 (Version None)
Quarter: 2012Q2

REPORT INFORMATION
  Report Type: 
  Country: None (occurrence: None)
  Receive Date: 20120402
  Receipt Date: 20120326
  Transmission Date: 20120825
  Serious: Yes (Other)
  Sender: FDA-Public Use
  Company Number: FR-PFIZER INC-2012076631

PATIENT
  Age: 55 Year
  Sex: Female

DRUGS (1)
  1. EFFEXOR XR [Suspect]
     Indication: MAJOR DEPRESSION
     Dosage: UNK
     Route: 048
     Dates: start: 20040101

REACTIONS (4)
  - ANTINUCLEAR ANTIBODY POSITIVE [None]
  - HISTONE ANTIBODY POSITIVE [None]
  - ARTHRALGIA [None]
  - SJOGREN'S SYNDROME [None]
